FAERS Safety Report 5333832-6 (Version None)
Quarter: 2007Q2

REPORT INFORMATION
  Report Type: 
  Country: None (occurrence: None)
  Receive Date: 20070524
  Receipt Date: 20070518
  Transmission Date: 20071010
  Serious: Yes (Disabling, Other)
  Sender: FDA-Public Use
  Company Number: US-ASTRAZENECA-2003UW07757

PATIENT
  Age: 49 Year
  Sex: Female

DRUGS (1)
  1. NEXIUM [Suspect]
     Indication: GASTROOESOPHAGEAL REFLUX DISEASE
     Route: 048

REACTIONS (8)
  - ABDOMINAL PAIN [None]
  - CHEST DISCOMFORT [None]
  - DYSPHAGIA [None]
  - HEADACHE [None]
  - ILL-DEFINED DISORDER [None]
  - MYALGIA [None]
  - PANCREATITIS [None]
  - PANIC ATTACK [None]
